FAERS Safety Report 22258594 (Version 2)
Quarter: 2023Q4

REPORT INFORMATION
  Report Type: Report from Study
  Country: NL (occurrence: NL)
  Receive Date: 20230427
  Receipt Date: 20231026
  Transmission Date: 20240109
  Serious: Yes (Other)
  Sender: FDA-Public Use
  Company Number: NL-ABBVIE-4730560

PATIENT
  Sex: Female

DRUGS (26)
  1. CERTOLIZUMAB PEGOL [Suspect]
     Active Substance: CERTOLIZUMAB PEGOL
     Indication: Product used for unknown indication
     Dosage: UNK
     Dates: start: 201002, end: 201008
  2. HUMIRA [Suspect]
     Active Substance: ADALIMUMAB
     Indication: Vulvitis
     Dosage: UNK
     Route: 058
     Dates: start: 2009
  3. HUMIRA [Suspect]
     Active Substance: ADALIMUMAB
     Dosage: UNK
     Route: 058
     Dates: start: 2021, end: 2022
  4. HUMIRA [Suspect]
     Active Substance: ADALIMUMAB
     Dosage: UNK
     Route: 058
     Dates: start: 2008
  5. CLOBETASOL [Concomitant]
     Active Substance: CLOBETASOL
     Indication: Crohn^s disease
     Dosage: FORM STRENGTH: 30 MILLIGRAM
     Dates: start: 2014
  6. CLOBETASOL [Concomitant]
     Active Substance: CLOBETASOL
     Indication: Vulvitis
     Dosage: FORM STRENGTH: 30 MILLIGRAM
     Dates: start: 2020
  7. CIPROFLOXACIN [Concomitant]
     Active Substance: CIPROFLOXACIN
     Indication: Product used for unknown indication
     Dosage: UNK
     Dates: start: 2008
  8. PREDNISONE [Concomitant]
     Active Substance: PREDNISONE
     Indication: Vulvitis
     Dosage: 20 MILLIGRAM
     Dates: start: 2004
  9. PREDNISONE [Concomitant]
     Active Substance: PREDNISONE
     Dosage: 15 MILLIGRAM
     Dates: start: 2008, end: 2008
  10. PREDNISONE [Concomitant]
     Active Substance: PREDNISONE
     Dosage: FORM STRENGTH: 15 MILLIGRAM
     Dates: start: 2020
  11. PREDNISONE [Concomitant]
     Active Substance: PREDNISONE
     Dosage: FORM STRENGTH: 15 MILLIGRAM
     Dates: start: 2023, end: 2023
  12. STELARA [Concomitant]
     Active Substance: USTEKINUMAB
     Indication: Skin disorder
     Dosage: FREQUENCY TEXT: EVERY 4 WEEKS
     Dates: start: 2020, end: 2021
  13. BUDESONIDE [Concomitant]
     Active Substance: BUDESONIDE
     Indication: Product used for unknown indication
     Dosage: UNK
     Dates: start: 2004
  14. THIOGUANINE ANHYDROUS [Concomitant]
     Active Substance: THIOGUANINE ANHYDROUS
     Indication: Product used for unknown indication
     Dosage: UNK
     Dates: start: 2016
  15. UPADACITINIB [Concomitant]
     Active Substance: UPADACITINIB
     Indication: Product used for unknown indication
     Dosage: UNK
  16. METHOTREXATE SODIUM [Concomitant]
     Active Substance: METHOTREXATE SODIUM
     Indication: Vulvitis
     Dosage: UNK
     Dates: start: 2014
  17. METHOTREXATE SODIUM [Concomitant]
     Active Substance: METHOTREXATE SODIUM
     Indication: Crohn^s disease
  18. ENTYVIO [Concomitant]
     Active Substance: VEDOLIZUMAB
     Indication: Product used for unknown indication
     Dosage: UNK
     Dates: start: 2021
  19. ELIDEL [Concomitant]
     Active Substance: PIMECROLIMUS
     Indication: Product used for unknown indication
     Dosage: UNK
     Dates: start: 2020
  20. INFLIXIMAB [Concomitant]
     Active Substance: INFLIXIMAB
     Indication: Vulvitis
     Dosage: FORM STRENGTH: 700 MILLIGRAM, FREQUENCY TEXT: EVERY 4 WEEKS
     Dates: start: 2010
  21. INFLIXIMAB [Concomitant]
     Active Substance: INFLIXIMAB
     Indication: Crohn^s disease
     Dosage: FORM STRENGTH: 700 MILLIGRAM, FREQUENCY TEXT: EVERY 4 WEEKS
     Dates: start: 2014
  22. INFLIXIMAB [Concomitant]
     Active Substance: INFLIXIMAB
     Dosage: FORM STRENGTH: 700 MILLIGRAM, FREQUENCY TEXT: EVERY 4 WEEKS
     Dates: start: 2018
  23. METRONIDAZOLE [Concomitant]
     Active Substance: METRONIDAZOLE
     Indication: Product used for unknown indication
     Dosage: UNK
     Dates: start: 2004
  24. METRONIDAZOLE [Concomitant]
     Active Substance: METRONIDAZOLE
     Dosage: UNK
     Dates: start: 2010
  25. TACROLIMUS [Concomitant]
     Active Substance: TACROLIMUS
     Indication: Product used for unknown indication
     Dosage: UNK
     Dates: start: 2008
  26. AZATHIOPRINE [Concomitant]
     Active Substance: AZATHIOPRINE
     Indication: Crohn^s disease
     Dosage: UNK
     Dates: start: 2004

REACTIONS (10)
  - Crohn^s disease [Unknown]
  - Anal fistula [Unknown]
  - Vulvitis [Unknown]
  - Skin disorder [Unknown]
  - Orofacial granulomatosis [Unknown]
  - Dermatitis atopic [Recovering/Resolving]
  - Granulomatous dermatitis [Recovered/Resolved]
  - Seborrhoeic dermatitis [Recovering/Resolving]
  - Episcleritis [Unknown]
  - Therapeutic product effect decreased [Unknown]

NARRATIVE: CASE EVENT DATE: 20080101
